FAERS Safety Report 25718660 (Version 1)
Quarter: 2025Q3

REPORT INFORMATION
  Report Type: Spontaneous
  Country: JP (occurrence: JP)
  Receive Date: 20250823
  Receipt Date: 20250823
  Transmission Date: 20251021
  Serious: Yes (Death)
  Sender: ABBVIE
  Company Number: JP-ABBVIE-6427966

PATIENT

DRUGS (1)
  1. VYALEV [Suspect]
     Active Substance: FOSCARBIDOPA\FOSLEVODOPA
     Indication: Parkinson^s disease
     Route: 058
     Dates: start: 2024

REACTIONS (7)
  - Coronavirus infection [Fatal]
  - Infusion site haemorrhage [Unknown]
  - Infusion site swelling [Unknown]
  - Drug hypersensitivity [Unknown]
  - Infusion site discharge [Unknown]
  - Infusion site induration [Unknown]
  - Infusion site erythema [Unknown]
